FAERS Safety Report 23024079 (Version 1)
Quarter: 2023Q4

REPORT INFORMATION
  Report Type: Spontaneous
  Country: US (occurrence: US)
  Receive Date: 20231004
  Receipt Date: 20231004
  Transmission Date: 20240109
  Serious: No
  Sender: FDA-Public Use
  Company Number: US-AMNEAL PHARMACEUTICALS-2023-AMRX-02328

PATIENT
  Sex: Male
  Weight: 71.655 kg

DRUGS (1)
  1. CLOBETASOL PROPIONATE [Suspect]
     Active Substance: CLOBETASOL PROPIONATE
     Indication: Dry skin
     Dosage: UNK
     Route: 061
     Dates: start: 202305, end: 202306

REACTIONS (3)
  - Erythema [Recovering/Resolving]
  - Pruritus [Recovering/Resolving]
  - Alopecia [Recovering/Resolving]
